FAERS Safety Report 8255634-3 (Version None)
Quarter: 2012Q2

REPORT INFORMATION
  Report Type: 
  Country: None (occurrence: None)
  Receive Date: 20120403
  Receipt Date: 20120326
  Transmission Date: 20120825
  Serious: Yes (Hospitalization, Other)
  Sender: FDA-Public Use
  Company Number: PHHY2012AU025844

PATIENT
  Sex: Male

DRUGS (2)
  1. ZYPREXA [Concomitant]
     Dosage: 10 MG, UNK
     Route: 048
  2. CLOZARIL [Suspect]
     Dosage: 400 MG
     Route: 048
     Dates: start: 20070504, end: 20120224

REACTIONS (3)
  - MALAISE [None]
  - BRAIN INJURY [None]
  - WEIGHT INCREASED [None]
